FAERS Safety Report 9804603 (Version 1)
Quarter: 2014Q1

REPORT INFORMATION
  Report Type: Spontaneous
  Country: US (occurrence: US)
  Receive Date: 20140108
  Receipt Date: 20140108
  Transmission Date: 20141002
  Serious: No
  Sender: FDA-Public Use
  Company Number: US-ENDO PHARMACEUTICALS INC.-ZYDN20130001

PATIENT
  Sex: Male

DRUGS (1)
  1. ZYDONE 7.5MG/400MG [Suspect]
     Indication: PAIN
     Dosage: 30/1600 MG
     Route: 048
     Dates: start: 2000

REACTIONS (1)
  - Drug effect decreased [Not Recovered/Not Resolved]
